FAERS Safety Report 6868123-5 (Version None)
Quarter: 2010Q3

REPORT INFORMATION
  Report Type: 
  Country: None (occurrence: None)
  Receive Date: 20100722
  Receipt Date: 20080522
  Transmission Date: 20110219
  Serious: No
  Sender: FDA-Public Use
  Company Number: US-PFIZER INC-2008045006

PATIENT
  Sex: Female
  Weight: 81.8 kg

DRUGS (4)
  1. CHANTIX [Suspect]
     Indication: SMOKING CESSATION THERAPY
     Route: 048
     Dates: start: 20080401, end: 20080401
  2. PREVACID [Concomitant]
  3. WELLBUTRIN [Concomitant]
  4. CLARITIN [Concomitant]

REACTIONS (4)
  - MEDICATION ERROR [None]
  - NAUSEA [None]
  - SOMNOLENCE [None]
  - VOMITING [None]
